FAERS Safety Report 5946203-6 (Version None)
Quarter: 2008Q4

REPORT INFORMATION
  Report Type: 
  Country: None (occurrence: None)
  Receive Date: 20081106
  Receipt Date: 20081024
  Transmission Date: 20090506
  Serious: Yes (Hospitalization)
  Sender: FDA-Public Use
  Company Number: 0281

PATIENT
  Age: 54 Year
  Sex: Male

DRUGS (1)
  1. INDOCIN [Suspect]
     Indication: GOUT
     Dosage: 100 MG
     Route: 048
     Dates: start: 20080920, end: 20080921

REACTIONS (2)
  - AMNESIA [None]
  - DISORIENTATION [None]
